FAERS Safety Report 6936594-1 (Version None)
Quarter: 2010Q3

REPORT INFORMATION
  Report Type: 
  Country: None (occurrence: None)
  Receive Date: 20100823
  Receipt Date: 20100812
  Transmission Date: 20110219
  Serious: Yes (Other)
  Sender: FDA-Public Use
  Company Number: CH-ROCHE-720902

PATIENT
  Age: 66 Year
  Sex: Male

DRUGS (8)
  1. ACTEMRA [Suspect]
     Indication: PSORIATIC ARTHROPATHY
     Dosage: FORM: INFUSION
     Route: 041
     Dates: start: 20090701
  2. TENORMIN [Interacting]
     Indication: ESSENTIAL HYPERTENSION
     Dosage: DURATION: LONG TERM
     Route: 048
  3. APROVEL [Concomitant]
     Indication: ESSENTIAL HYPERTENSION
     Dosage: DURATION: LONG TERM
     Route: 048
  4. COVERSUM [Concomitant]
     Indication: ESSENTIAL HYPERTENSION
     Dosage: DURATION: LONG TERM
     Route: 048
  5. ASPIRINE [Concomitant]
     Indication: PROPHYLACTIC CHEMOTHERAPY
     Dosage: DURATION: LONG TERM
     Route: 048
  6. GLUCOPHAGE [Concomitant]
     Dosage: DURATION: LONG TERM
     Route: 048
  7. EZETIMIBE/SIMVASTATIN [Concomitant]
     Indication: HYPERLIPIDAEMIA
     Dosage: DURATION: LONG TERM
     Route: 048
  8. ALFUZOSIN HCL [Concomitant]
     Dosage: DRUG NAME: XATRAL UNO; DURATION: LONG TERM
     Route: 048

REACTIONS (6)
  - BRADYCARDIA [None]
  - DIZZINESS [None]
  - DRUG INTERACTION [None]
  - HYPERHIDROSIS [None]
  - HYPERTENSION [None]
  - TYPE I HYPERSENSITIVITY [None]
